FAERS Safety Report 25679164 (Version 2)
Quarter: 2025Q3

REPORT INFORMATION
  Report Type: Report from Study
  Country: CA (occurrence: CA)
  Receive Date: 20250814
  Receipt Date: 20250913
  Transmission Date: 20251020
  Serious: Yes (Death, Hospitalization)
  Sender: ABBVIE
  Company Number: CA-ABBVIE-6413765

PATIENT
  Age: 70 Year
  Sex: Male

DRUGS (1)
  1. SKYRIZI [Suspect]
     Active Substance: RISANKIZUMAB-RZAA
     Indication: Psoriasis
     Route: 058
     Dates: start: 20230208

REACTIONS (6)
  - Death [Fatal]
  - Hospitalisation [Unknown]
  - Fall [Unknown]
  - Aspiration [Unknown]
  - Pneumonia [Unknown]
  - Head injury [Unknown]

NARRATIVE: CASE EVENT DATE: 20250801
